FAERS Safety Report 26149122 (Version 1)
Quarter: 2025Q4

REPORT INFORMATION
  Report Type: Spontaneous
  Country: EU (occurrence: EU)
  Receive Date: 20251212
  Receipt Date: 20251212
  Transmission Date: 20260118
  Serious: Yes (Other)
  Sender: RANBAXY
  Company Number: EU-AFSSAPS-AVMP2025000218

PATIENT
  Age: 30 Year
  Sex: Male

DRUGS (2)
  1. PREGABALIN [Suspect]
     Active Substance: PREGABALIN
     Indication: Product used for unknown indication
     Dosage: 300 MILLIGRAM, 300MG / DAY
     Route: 048
     Dates: start: 2009
  2. COCAINE [Concomitant]
     Active Substance: COCAINE
     Indication: Product used for unknown indication
     Dosage: DOSAGE NOT SPECIFIED
     Route: 045
     Dates: start: 2024

REACTIONS (3)
  - Drug use disorder [Unknown]
  - Substance use disorder [Unknown]
  - Disturbance in attention [Recovered/Resolved]

NARRATIVE: CASE EVENT DATE: 20170101
